FAERS Safety Report 7642487-7 (Version None)
Quarter: 2011Q3

REPORT INFORMATION
  Report Type: 
  Country: None (occurrence: None)
  Receive Date: 20110728
  Receipt Date: 20110727
  Transmission Date: 20111222
  Serious: Yes (Life-Threatening)
  Sender: FDA-Public Use
  Company Number: FR-ABBOTT-11P-056-0841794-00

PATIENT
  Age: 57 Year
  Sex: Female

DRUGS (8)
  1. STABLON [Concomitant]
     Indication: PRODUCT USED FOR UNKNOWN INDICATION
  2. IMOVANE [Concomitant]
     Indication: PRODUCT USED FOR UNKNOWN INDICATION
  3. DIPRIVAN [Suspect]
     Indication: GENERAL ANAESTHESIA
     Dates: start: 20110525, end: 20110525
  4. CELOCURINE [Suspect]
     Indication: GENERAL ANAESTHESIA
     Dates: start: 20110525, end: 20110525
  5. TRIMEPRAZINE TARTRATE [Concomitant]
     Indication: PRODUCT USED FOR UNKNOWN INDICATION
  6. DEPAKOTE [Concomitant]
     Indication: PRODUCT USED FOR UNKNOWN INDICATION
  7. SEVOFLURANE [Suspect]
     Indication: GENERAL ANAESTHESIA
     Dates: start: 20110525, end: 20110525
  8. ULTIVA [Suspect]
     Indication: GENERAL ANAESTHESIA
     Dates: start: 20110525, end: 20110525

REACTIONS (7)
  - ANAPHYLACTIC SHOCK [None]
  - GENERALISED ERYTHEMA [None]
  - HYPOTENSION [None]
  - BRONCHOSPASM [None]
  - TACHYCARDIA [None]
  - OXYGEN SATURATION DECREASED [None]
  - HYPERSENSITIVITY [None]
